FAERS Safety Report 19652070 (Version 1)
Quarter: 2021Q3

REPORT INFORMATION
  Report Type: Report from Study
  Country: MX (occurrence: MX)
  Receive Date: 20210803
  Receipt Date: 20210803
  Transmission Date: 20211014
  Serious: Yes (Life-Threatening, Hospitalization, Other)
  Sender: FDA-Public Use
  Company Number: MX-ASTRAZENECA-2021A655616

PATIENT
  Sex: Male
  Weight: 79 kg

DRUGS (1)
  1. PULMICORT TURBUHALER [Suspect]
     Active Substance: BUDESONIDE
     Indication: COVID-19
     Dosage: 0.250,EVERY 12 HOURS
     Route: 055
     Dates: start: 20210723, end: 20210726

REACTIONS (5)
  - Oxygen saturation decreased [Unknown]
  - Off label use [Unknown]
  - Drowning [Unknown]
  - Respiratory rate increased [Unknown]
  - Cough [Unknown]
